FAERS Safety Report 18863634 (Version 22)
Quarter: 2022Q3

REPORT INFORMATION
  Report Type: Spontaneous
  Country: DK (occurrence: DK)
  Receive Date: 20210209
  Receipt Date: 20220906
  Transmission Date: 20221027
  Serious: Yes (Death, Life-Threatening, Hospitalization, Disabling, Other)
  Sender: FDA-Public Use
  Company Number: GB-KYOWAKIRIN-2020BKK015405AA

PATIENT
  Age: 5 Year
  Sex: Male
  Weight: 18 kg

DRUGS (56)
  1. AMOXICILLIN\CLAVULANIC ACID [Suspect]
     Active Substance: AMOXICILLIN\CLAVULANIC ACID
     Indication: Pneumonia
     Dosage: UNK
     Route: 065
     Dates: start: 20150611, end: 20160720
  2. AMOXICILLIN\CLAVULANIC ACID [Suspect]
     Active Substance: AMOXICILLIN\CLAVULANIC ACID
     Dosage: UNK
     Route: 065
     Dates: start: 20160714, end: 20160720
  3. AMOXICILLIN TRIHYDRATE [Suspect]
     Active Substance: AMOXICILLIN
     Indication: Pneumonia
     Dosage: UNK
     Route: 065
     Dates: start: 20160714, end: 20160720
  4. PENICILLIN G [Suspect]
     Active Substance: PENICILLIN G
     Indication: Antibiotic therapy
     Dosage: UNK
     Route: 065
  5. CEFUROXIME [Suspect]
     Active Substance: CEFUROXIME
     Indication: Antibiotic therapy
     Dosage: UNK
     Route: 042
  6. CIPROFLOXACIN [Suspect]
     Active Substance: CIPROFLOXACIN
     Indication: Product used for unknown indication
     Dosage: UNK
     Route: 065
  7. AMOXICILLIN\CLAVULANATE POTASSIUM [Suspect]
     Active Substance: AMOXICILLIN\CLAVULANATE POTASSIUM
     Indication: Pneumonia
     Dosage: UNK
     Route: 065
     Dates: start: 20150611
  8. AMOXICILLIN\CLAVULANATE POTASSIUM [Suspect]
     Active Substance: AMOXICILLIN\CLAVULANATE POTASSIUM
     Dosage: UNK
     Route: 065
     Dates: start: 20160714, end: 20160720
  9. DORNASE ALFA [Suspect]
     Active Substance: DORNASE ALFA
     Indication: Interstitial lung disease
     Dosage: UNK
     Route: 065
  10. DURAGESIC [Suspect]
     Active Substance: FENTANYL
     Indication: Pneumococcal infection
     Dosage: UNK
     Route: 065
  11. DURAGESIC [Suspect]
     Active Substance: FENTANYL
     Indication: Pneumonia aspiration
  12. DURAGESIC [Suspect]
     Active Substance: FENTANYL
     Indication: Circulatory collapse
  13. DURAGESIC [Suspect]
     Active Substance: FENTANYL
     Indication: Pneumonia
  14. DURAGESIC [Suspect]
     Active Substance: FENTANYL
     Indication: Respiratory tract infection
  15. DURAGESIC [Suspect]
     Active Substance: FENTANYL
     Indication: Cerebral ischaemia
  16. DURAGESIC [Suspect]
     Active Substance: FENTANYL
     Indication: Interstitial lung disease
  17. FENTANYL [Suspect]
     Active Substance: FENTANYL
     Indication: Antibiotic therapy
     Dosage: UNK
     Route: 042
  18. FENTANYL [Suspect]
     Active Substance: FENTANYL
     Indication: Measles immunisation
  19. FENTANYL [Suspect]
     Active Substance: FENTANYL
     Indication: Rubella immunisation
  20. FENTANYL [Suspect]
     Active Substance: FENTANYL
     Indication: Pneumococcal sepsis
  21. FENTANYL [Suspect]
     Active Substance: FENTANYL
     Indication: Pneumococcal infection
  22. FENTANYL [Suspect]
     Active Substance: FENTANYL
     Indication: Cerebral ischaemia
  23. FENTANYL [Suspect]
     Active Substance: FENTANYL
     Indication: Intestinal ischaemia
  24. FENTANYL [Suspect]
     Active Substance: FENTANYL
     Indication: Interstitial lung disease
  25. FENTANYL [Suspect]
     Active Substance: FENTANYL
     Indication: Brain injury
  26. FENTANYL [Suspect]
     Active Substance: FENTANYL
     Indication: Pneumonia
  27. FENTANYL [Suspect]
     Active Substance: FENTANYL
     Indication: Respiratory tract infection bacterial
  28. FENTANYL [Suspect]
     Active Substance: FENTANYL
     Indication: Pneumonia aspiration
  29. FENTANYL [Suspect]
     Active Substance: FENTANYL
     Indication: Circulatory collapse
  30. FENTANYL [Suspect]
     Active Substance: FENTANYL
     Indication: Mumps immunisation
  31. GENTAMICIN [Suspect]
     Active Substance: GENTAMICIN
     Indication: Antibiotic therapy
     Dosage: UNK
     Route: 042
  32. GENTAMICIN [Suspect]
     Active Substance: GENTAMICIN
     Indication: Measles immunisation
  33. GENTAMICIN [Suspect]
     Active Substance: GENTAMICIN
     Indication: Mumps immunisation
  34. GENTAMICIN [Suspect]
     Active Substance: GENTAMICIN
     Indication: Rubella immunisation
  35. GENTAMICIN [Suspect]
     Active Substance: GENTAMICIN
     Indication: Pneumococcal sepsis
  36. DEXTROSE [Suspect]
     Active Substance: DEXTROSE
     Indication: Pneumonia
     Dosage: UNK(DARROW LIQ GLUCOSE)
     Route: 065
  37. HBVAXPRO [Suspect]
     Active Substance: HEPATITIS B VIRUS VACCINE
     Indication: Pneumococcal sepsis
     Dosage: UNK
     Route: 065
  38. MEROPENEM [Suspect]
     Active Substance: MEROPENEM
     Indication: Antibiotic therapy
     Dosage: UNK
     Route: 065
  39. M-M-RVAXPRO [Suspect]
     Active Substance: MEASLES VIRUS STRAIN ENDERS^ ATTENUATED EDMONSTON LIVE ANTIGEN\MUMPS VIRUS STRAIN B LEVEL JERYL LYNN
     Indication: Pneumococcal sepsis
     Dosage: UNK
     Route: 065
     Dates: start: 20170918, end: 20170918
  40. M-M-RVAXPRO [Suspect]
     Active Substance: MEASLES VIRUS STRAIN ENDERS^ ATTENUATED EDMONSTON LIVE ANTIGEN\MUMPS VIRUS STRAIN B LEVEL JERYL LYNN
     Indication: Immunisation
  41. MUMPS VIRUS VACCINE LIVE NOS [Suspect]
     Active Substance: MUMPS VIRUS STRAIN B LEVEL JERYL LYNN LIVE ANTIGEN
     Indication: Product used for unknown indication
     Dosage: UNK
     Route: 065
  42. ACETAMINOPHEN\TRAMADOL HYDROCHLORIDE [Suspect]
     Active Substance: ACETAMINOPHEN\TRAMADOL HYDROCHLORIDE
     Indication: Product used for unknown indication
     Dosage: UNK
     Route: 065
  43. PENICILLIN V [Suspect]
     Active Substance: PENICILLIN V
     Indication: Antibiotic therapy
     Dosage: UNK
     Route: 042
  44. PIPERACILLIN AND TAZOBACTAM [Suspect]
     Active Substance: PIPERACILLIN SODIUM\TAZOBACTAM SODIUM
     Indication: Respiratory arrest
     Dosage: UNK
     Route: 065
  45. PIPERACILLIN AND TAZOBACTAM [Suspect]
     Active Substance: PIPERACILLIN SODIUM\TAZOBACTAM SODIUM
     Indication: Vomiting
  46. CLAVULANATE POTASSIUM [Suspect]
     Active Substance: CLAVULANATE POTASSIUM
     Indication: Product used for unknown indication
     Dosage: UNK
     Route: 065
  47. POTASSIUM CHLORIDE [Suspect]
     Active Substance: POTASSIUM CHLORIDE
     Indication: Pneumonia
     Dosage: UNK (DARROW LIQ GLUCOSE)
     Route: 065
  48. PROPOFOL [Suspect]
     Active Substance: PROPOFOL
     Indication: Product used for unknown indication
     Dosage: UNK
     Route: 065
  49. PULMOZYME [Suspect]
     Active Substance: DORNASE ALFA
     Indication: Interstitial lung disease
     Dosage: UNK
     Route: 065
  50. RUBELLA VIRUS VACCINE LIVE ATTENUATED [Suspect]
     Active Substance: RUBELLA VIRUS STRAIN WISTAR RA 27/3 LIVE ANTIGEN
     Indication: Pneumococcal sepsis
     Dosage: UNK
     Route: 065
  51. ALBUTEROL [Suspect]
     Active Substance: ALBUTEROL
     Indication: Product used for unknown indication
     Dosage: UNK
     Route: 065
  52. TRISODIUM CITRATE DIHYDRATE [Suspect]
     Active Substance: TRISODIUM CITRATE DIHYDRATE
     Indication: Pneumonia
     Dosage: UNK (DARROW LIQ GLUCOSE)
     Route: 065
  53. SODIUM CHLORIDE [Suspect]
     Active Substance: SODIUM CHLORIDE
     Indication: Pneumonia
     Dosage: UNK
     Route: 065
  54. PIPERACILLIN SODIUM\TAZOBACTAM SODIUM [Suspect]
     Active Substance: PIPERACILLIN SODIUM\TAZOBACTAM SODIUM
     Indication: Vomiting
     Dosage: UNK
     Route: 065
  55. PIPERACILLIN SODIUM\TAZOBACTAM SODIUM [Suspect]
     Active Substance: PIPERACILLIN SODIUM\TAZOBACTAM SODIUM
     Indication: Respiratory arrest
  56. VENTOLIN [Suspect]
     Active Substance: ALBUTEROL SULFATE
     Indication: Product used for unknown indication
     Dosage: UNK
     Route: 016

REACTIONS (49)
  - Intestinal ischaemia [Fatal]
  - Cerebral ischaemia [Fatal]
  - Brain injury [Fatal]
  - Circulatory collapse [Fatal]
  - Pneumonia [Fatal]
  - Respiratory arrest [Fatal]
  - Pneumonia aspiration [Fatal]
  - Disease complication [Fatal]
  - Muscular weakness [Fatal]
  - Pneumococcal sepsis [Fatal]
  - Respiratory tract infection bacterial [Fatal]
  - Interstitial lung disease [Fatal]
  - Dehydration [Fatal]
  - Spinal muscular atrophy [Fatal]
  - Tachypnoea [Fatal]
  - Dysphagia [Fatal]
  - Metabolic disorder [Fatal]
  - Motor dysfunction [Fatal]
  - Injury [Fatal]
  - Sputum increased [Fatal]
  - Atelectasis [Fatal]
  - Chest X-ray abnormal [Fatal]
  - Increased bronchial secretion [Fatal]
  - Condition aggravated [Fatal]
  - Lung consolidation [Fatal]
  - Inflammation [Fatal]
  - Resuscitation [Fatal]
  - Pyrexia [Fatal]
  - Diarrhoea [Fatal]
  - Vomiting [Fatal]
  - Dyspnoea [Fatal]
  - Malaise [Fatal]
  - Secretion discharge [Fatal]
  - Positive airway pressure therapy [Fatal]
  - Mechanical ventilation [Fatal]
  - Endotracheal intubation [Fatal]
  - Ischaemic cerebral infarction [Fatal]
  - Lower respiratory tract infection bacterial [Fatal]
  - Stoma closure [Fatal]
  - Scoliosis [Fatal]
  - Ascites [Fatal]
  - Bronchial disorder [Fatal]
  - Muscle atrophy [Fatal]
  - Demyelination [Fatal]
  - Motor neurone disease [Fatal]
  - Lymphadenectomy [Fatal]
  - Lung infiltration [Fatal]
  - Product use in unapproved indication [Fatal]
  - Off label use [Fatal]

NARRATIVE: CASE EVENT DATE: 20160620
